FAERS Safety Report 8069719-8 (Version None)
Quarter: 2012Q1

REPORT INFORMATION
  Report Type: 
  Country: None (occurrence: None)
  Receive Date: 20120125
  Receipt Date: 20110208
  Transmission Date: 20120608
  Serious: No
  Sender: FDA-Public Use
  Company Number: US-PFIZER INC-2011US-43162

PATIENT
  Sex: Female

DRUGS (1)
  1. VERAPAMIL HCL [Suspect]
     Indication: GINGIVAL BLEEDING
     Dosage: UNK
     Route: 065

REACTIONS (2)
  - GINGIVAL BLEEDING [None]
  - OFF LABEL USE [None]
